FAERS Safety Report 8425056-0 (Version None)
Quarter: 2012Q2

REPORT INFORMATION
  Report Type: 
  Country: None (occurrence: None)
  Receive Date: 20120605
  Receipt Date: 20120605
  Transmission Date: 20120825
  Serious: Yes (Hospitalization)
  Sender: FDA-Public Use
  Company Number: None

PATIENT
  Sex: Female
  Weight: 57 kg

DRUGS (6)
  1. PREDNISONE [Suspect]
     Dosage: 1000 MG
  2. RITUXIMAB (MOAB C2B8 ANTI CD20, CHIMERIC) [Suspect]
     Dosage: 640 MG
  3. ETOPOSIDE [Suspect]
     Dosage: 588 MG
  4. DOXORUBICIN HCL [Suspect]
     Dosage: 120 MG
  5. VINCRISTINE SULFATE [Suspect]
     Dosage: 2.72 MG
  6. CYCLOPHOSPHAMIDE [Suspect]
     Dosage: 2200 MG

REACTIONS (4)
  - FEBRILE NEUTROPENIA [None]
  - PRODUCTIVE COUGH [None]
  - UPPER GASTROINTESTINAL HAEMORRHAGE [None]
  - TOOTH INFECTION [None]
